FAERS Safety Report 10523146 (Version 1)
Quarter: 2014Q4

REPORT INFORMATION
  Report Type: Spontaneous
  Country: FR (occurrence: FR)
  Receive Date: 20141016
  Receipt Date: 20141016
  Transmission Date: 20150528
  Serious: Yes (Hospitalization, Other)
  Sender: FDA-Public Use
  Company Number: PHHY2014FR133419

PATIENT
  Age: 35 Year
  Sex: Female

DRUGS (8)
  1. OXYGEN. [Suspect]
     Active Substance: OXYGEN
     Indication: ACUTE PULMONARY OEDEMA
     Dosage: 15 L, PER MIN
     Route: 045
  2. OXYGEN. [Suspect]
     Active Substance: OXYGEN
     Dosage: 6 L, PER MIN
     Route: 045
  3. HEPARIN [Suspect]
     Active Substance: HEPARIN SODIUM
     Indication: PULMONARY EMBOLISM
     Route: 040
  4. FUROSEMIDE. [Suspect]
     Active Substance: FUROSEMIDE
     Indication: ACUTE PULMONARY OEDEMA
     Dosage: 180 MG, UNK
     Route: 040
  5. SALBUTAMOL [Suspect]
     Active Substance: ALBUTEROL
     Indication: TOCOLYSIS
     Route: 065
  6. CELESTENE [Suspect]
     Active Substance: BETAMETHASONE
     Indication: MATERNAL THERAPY TO ENHANCE FOETAL LUNG MATURITY
     Dosage: 2 DF, 24 H APART
     Route: 030
  7. LOXEN [Suspect]
     Active Substance: NICARDIPINE HYDROCHLORIDE
     Indication: TOCOLYSIS
     Dosage: 4 MG/H, UNK
     Route: 042
  8. FUROSEMIDE. [Suspect]
     Active Substance: FUROSEMIDE
     Dosage: 40 MG, PER DAY
     Route: 065

REACTIONS (10)
  - Sense of oppression [Unknown]
  - Maternal exposure during pregnancy [Unknown]
  - Cough [Unknown]
  - Hyperlactacidaemia [Unknown]
  - Pleural effusion [Unknown]
  - Rales [Unknown]
  - Acute pulmonary oedema [Unknown]
  - Premature labour [Unknown]
  - Dyspnoea [Unknown]
  - Anaemia [Unknown]
